FAERS Safety Report 21805218 (Version 5)
Quarter: 2023Q1

REPORT INFORMATION
  Report Type: Spontaneous
  Country: US (occurrence: US)
  Receive Date: 20230102
  Receipt Date: 20230205
  Transmission Date: 20230418
  Serious: No
  Sender: FDA-Public Use
  Company Number: US-JNJFOC-20221228958

PATIENT
  Age: 59 Year
  Sex: Female
  Weight: 83.990 kg

DRUGS (8)
  1. TREMFYA [Suspect]
     Active Substance: GUSELKUMAB
     Indication: Psoriatic arthropathy
     Dosage: 04/JUL/2022
     Route: 058
     Dates: start: 202204
  2. EFFEXOR [Concomitant]
     Active Substance: VENLAFAXINE HYDROCHLORIDE
  3. TRAZODONE [Concomitant]
     Active Substance: TRAZODONE HYDROCHLORIDE
  4. FENOFIBRATE [Concomitant]
     Active Substance: FENOFIBRATE
  5. ATORVASTATIN [Concomitant]
     Active Substance: ATORVASTATIN
  6. ROPINIROLE [Concomitant]
     Active Substance: ROPINIROLE
  7. ACTHAR [Concomitant]
     Active Substance: CORTICOTROPIN
  8. CEFDINIR [Concomitant]
     Active Substance: CEFDINIR

REACTIONS (4)
  - Product dose omission issue [Unknown]
  - Device malfunction [Unknown]
  - Accidental exposure to product [Unknown]
  - Malaise [Unknown]

NARRATIVE: CASE EVENT DATE: 20221211
